FAERS Safety Report 14263134 (Version 2)
Quarter: 2017Q4

REPORT INFORMATION
  Report Type: Spontaneous
  Country: US (occurrence: US)
  Receive Date: 20171208
  Receipt Date: 20171231
  Transmission Date: 20180321
  Serious: Yes (Other)
  Sender: FDA-Public Use
  Company Number: US-TEVA-2017-US-829228

PATIENT
  Sex: Female

DRUGS (4)
  1. MORPHINE ER [Concomitant]
     Active Substance: MORPHINE
     Indication: BREAKTHROUGH PAIN
  2. NEURONTIN [Concomitant]
     Active Substance: GABAPENTIN
     Indication: NEUROPATHY PERIPHERAL
  3. FENTORA [Suspect]
     Active Substance: FENTANYL CITRATE
     Indication: SCOLIOSIS
     Dosage: 1600 MICROGRAM DAILY;
     Route: 002
  4. FENTORA [Suspect]
     Active Substance: FENTANYL CITRATE
     Indication: INTERVERTEBRAL DISC PROTRUSION

REACTIONS (8)
  - Product use in unapproved indication [Unknown]
  - Tongue neoplasm malignant stage unspecified [Unknown]
  - Pain [Unknown]
  - Drug dose omission [Unknown]
  - Weight decreased [Unknown]
  - Extra dose administered [Unknown]
  - Lip and/or oral cavity cancer [Unknown]
  - Eating disorder [Unknown]
